FAERS Safety Report 23874689 (Version 2)
Quarter: 2024Q2

REPORT INFORMATION
  Report Type: Report from Study
  Country: US (occurrence: US)
  Receive Date: 20240520
  Receipt Date: 20240531
  Transmission Date: 20240715
  Serious: Yes (Other)
  Sender: FDA-Public Use
  Company Number: US-OTSUKA-2024_013968

PATIENT
  Age: 73 Year
  Sex: Male
  Weight: 72.1 kg

DRUGS (2)
  1. CEDAZURIDINE\DECITABINE [Suspect]
     Active Substance: CEDAZURIDINE\DECITABINE
     Indication: Thrombocytopenia
     Dosage: 1 DF (35 MG DECITABINE AND 100 MG CEDAZURIDINE), QD 1-3 DAYS EVERY 28 DAY CYCLE
     Route: 048
     Dates: start: 20211215
  2. CEDAZURIDINE\DECITABINE [Suspect]
     Active Substance: CEDAZURIDINE\DECITABINE
     Indication: Myelodysplastic syndrome

REACTIONS (2)
  - Transient ischaemic attack [Recovering/Resolving]
  - Product packaging issue [Unknown]

NARRATIVE: CASE EVENT DATE: 20240419
